FAERS Safety Report 15590504 (Version 1)
Quarter: 2018Q4

REPORT INFORMATION
  Report Type: Spontaneous
  Country: US (occurrence: US)
  Receive Date: 20181106
  Receipt Date: 20181106
  Transmission Date: 20190205
  Serious: Yes (Other)
  Sender: FDA-Public Use
  Company Number: US-ACCORD-090933

PATIENT
  Sex: Female

DRUGS (6)
  1. CABERGOLINE. [Concomitant]
     Active Substance: CABERGOLINE
     Indication: HORMONE LEVEL ABNORMAL
  2. TEMOZOLOMIDE. [Suspect]
     Active Substance: TEMOZOLOMIDE
     Indication: PITUITARY TUMOUR BENIGN
  3. KETOCONAZOLE. [Concomitant]
     Active Substance: KETOCONAZOLE
     Indication: HORMONE LEVEL ABNORMAL
  4. CAPECITABINE. [Suspect]
     Active Substance: CAPECITABINE
     Indication: PITUITARY TUMOUR BENIGN
  5. KETOCONAZOLE. [Concomitant]
     Active Substance: KETOCONAZOLE
     Indication: HORMONE LEVEL ABNORMAL
  6. PASIREOTIDE. [Concomitant]
     Active Substance: PASIREOTIDE
     Indication: HORMONE LEVEL ABNORMAL

REACTIONS (3)
  - Drug intolerance [Unknown]
  - Off label use [Unknown]
  - Thrombocytopenia [Unknown]
